FAERS Safety Report 4347063-X (Version None)
Quarter: 2004Q1

REPORT INFORMATION
  Report Type: 
  Country: None (occurrence: None)
  Receive Date: 20040325
  Receipt Date: 20031217
  Transmission Date: 20041129
  Serious: No
  Sender: FDA-Public Use
  Company Number: USA031254987

PATIENT
  Age: 76 Year
  Sex: Female
  Weight: 54 kg

DRUGS (3)
  1. FORTEO [Suspect]
     Dates: start: 20031216
  2. THYROID TAB [Concomitant]
  3. MULTIVITAMIN [Concomitant]

REACTIONS (1)
  - BONE PAIN [None]
